FAERS Safety Report 21232340 (Version 1)
Quarter: 2022Q3

REPORT INFORMATION
  Report Type: Spontaneous
  Country: US (occurrence: US)
  Receive Date: 20220819
  Receipt Date: 20220819
  Transmission Date: 20221026
  Serious: No
  Sender: FDA-Public Use
  Company Number: US-KVK-TECH, INC-20211100149

PATIENT

DRUGS (1)
  1. HOMATROPINE METHYLBROMIDE\HYDROCODONE BITARTRATE [Suspect]
     Active Substance: HOMATROPINE METHYLBROMIDE\HYDROCODONE BITARTRATE
     Dosage: UNKNOWN
     Route: 065

REACTIONS (1)
  - Constipation [Unknown]
